FAERS Safety Report 13773275 (Version 2)
Quarter: 2017Q3

REPORT INFORMATION
  Report Type: Spontaneous
  Country: US (occurrence: US)
  Receive Date: 20170720
  Receipt Date: 20170724
  Transmission Date: 20171127
  Serious: No
  Sender: FDA-Public Use
  Company Number: US-PFIZER INC-2017311226

PATIENT
  Age: 15 Year
  Sex: Female
  Weight: 63 kg

DRUGS (2)
  1. SODIUM BICARBONATE. [Suspect]
     Active Substance: SODIUM BICARBONATE
     Indication: DIAGNOSTIC ASPIRATION
     Dosage: UNK
     Route: 042
     Dates: start: 20170512
  2. POTASSIUM PHOSPHATE DIBASIC/POTASSIUM PHOSPHATE MONOBASIC [Suspect]
     Active Substance: POTASSIUM PHOSPHATE, DIBASIC\POTASSIUM PHOSPHATE, MONOBASIC
     Dosage: UNK
     Route: 042
     Dates: start: 20170512

REACTIONS (5)
  - Product use issue [Unknown]
  - Product quality issue [Unknown]
  - Pyrexia [Recovered/Resolved]
  - Malaise [Recovered/Resolved]
  - Thyroid neoplasm [Unknown]

NARRATIVE: CASE EVENT DATE: 20170512
